FAERS Safety Report 20722628 (Version 1)
Quarter: 2022Q2

REPORT INFORMATION
  Report Type: Report from Study
  Country: US (occurrence: US)
  Receive Date: 20220419
  Receipt Date: 20220419
  Transmission Date: 20220721
  Serious: Yes (Hospitalization, Other)
  Sender: FDA-Public Use
  Company Number: US-ABBVIE-22K-163-4361031-00

PATIENT
  Age: 57 Year
  Sex: Female

DRUGS (26)
  1. VENETOCLAX [Suspect]
     Active Substance: VENETOCLAX
     Indication: Product used for unknown indication
     Route: 048
  2. VALGANCICLOVIR [Suspect]
     Active Substance: VALGANCICLOVIR
     Indication: Myelodysplastic syndrome
     Route: 048
     Dates: start: 20220411
  3. NORVASC [Concomitant]
     Active Substance: AMLODIPINE BESYLATE
     Indication: Product used for unknown indication
     Route: 048
     Dates: start: 20220408
  4. MEPRON [Concomitant]
     Active Substance: ATOVAQUONE
     Indication: Product used for unknown indication
     Dosage: 750MG/5 ML SUSPENSION
     Route: 048
  5. MEPRON [Concomitant]
     Active Substance: ATOVAQUONE
     Dosage: 750MG/5 ML SUSPENSION, 2 TIMES A DAY
     Route: 048
  6. ENTOCORT [Concomitant]
     Active Substance: BUDESONIDE
     Indication: Product used for unknown indication
     Dosage: 3MG 24 HR CAPSULE
     Route: 048
     Dates: start: 20220330
  7. AMARYL [Concomitant]
     Active Substance: GLIMEPIRIDE
     Indication: Type 2 diabetes mellitus
     Dosage: 2 TIMES A DAY
     Route: 048
     Dates: start: 20220408
  8. PROTONIX [Concomitant]
     Active Substance: PANTOPRAZOLE SODIUM
     Indication: Product used for unknown indication
     Dosage: DELAYED RELEASED TABLET, EVERY MORNING BEFORE BREAKFAST
     Route: 048
     Dates: start: 20220330
  9. NOXAFIL [Concomitant]
     Active Substance: POSACONAZOLE
     Indication: Product used for unknown indication
     Dosage: TAKE 3 TABLETS BY MOUTH DAILY WITH BREAKFAST
     Route: 048
     Dates: start: 20220330
  10. ROBITUSSIN DM [Concomitant]
     Active Substance: DEXTROMETHORPHAN HYDROBROMIDE\GUAIFENESIN
     Indication: Product used for unknown indication
     Dosage: 10-100MG/5ML
     Route: 048
     Dates: start: 20220322
  11. FLOVENT HFA [Concomitant]
     Active Substance: FLUTICASONE PROPIONATE
     Indication: Product used for unknown indication
     Dosage: 220MCG/ACTUATION HFA AEROSOL INHALER, INHALE 1 PUFF BY MOUTH EVERY 12 HOURS
     Route: 055
     Dates: start: 20220321
  12. SPIRIVA RESPIMAT [Concomitant]
     Active Substance: TIOTROPIUM BROMIDE
     Indication: Product used for unknown indication
     Dosage: 2.5MCG/ACTUATION MIST
     Route: 055
     Dates: start: 20220321
  13. MAGNESIUM OXIDE [Concomitant]
     Active Substance: MAGNESIUM OXIDE
     Indication: Product used for unknown indication
     Route: 048
     Dates: start: 20220308
  14. REZUROCK [Concomitant]
     Active Substance: BELUMOSUDIL
     Indication: Product used for unknown indication
     Route: 048
     Dates: start: 20220223
  15. VEETIDS [Concomitant]
     Active Substance: PENICILLIN V POTASSIUM
     Indication: Product used for unknown indication
     Route: 048
     Dates: start: 20220223
  16. REFRESH PLUS [Concomitant]
     Active Substance: CARBOXYMETHYLCELLULOSE SODIUM
     Indication: Product used for unknown indication
     Dosage: EYE DROP, INSTILL 2 DROPS INTO BOTH EYES 4 TIMES DAILY AS NEEDED
     Route: 047
  17. SYNTHROID [Concomitant]
     Active Substance: LEVOTHYROXINE SODIUM
     Indication: Product used for unknown indication
     Dosage: EVERY MORNING BEFORE BREAKFAST
     Route: 048
     Dates: start: 20220221
  18. ZOVIRAX [Concomitant]
     Active Substance: ACYCLOVIR
     Indication: Product used for unknown indication
     Route: 048
     Dates: start: 20220207
  19. ARTIFICIAL SALIVA [Concomitant]
     Indication: Product used for unknown indication
     Dosage: AS DIRECTED
     Dates: start: 20220207
  20. ZITHROMAX [Concomitant]
     Active Substance: AZITHROMYCIN DIHYDRATE
     Indication: Bronchiolitis obliterans syndrome
     Route: 048
     Dates: start: 20220207
  21. MARINOL [Concomitant]
     Active Substance: DRONABINOL
     Indication: Product used for unknown indication
     Dosage: 3 TIMES A DAY BEFORE MEALS
     Route: 048
     Dates: start: 20220207
  22. BREO ELLIPTA [Concomitant]
     Active Substance: FLUTICASONE FUROATE\VILANTEROL TRIFENATATE
     Indication: Bronchiolitis obliterans syndrome
     Dosage: 200-25MCG/DOSE
     Route: 055
     Dates: start: 20220207
  23. AQUAPHOR [Concomitant]
     Active Substance: PETROLATUM
     Indication: Product used for unknown indication
     Dosage: AS DIRECTED
     Dates: start: 20220207
  24. SINGULAIR [Concomitant]
     Active Substance: MONTELUKAST SODIUM
     Indication: Product used for unknown indication
     Dosage: AT BEDTIME
     Route: 048
     Dates: start: 20220207
  25. PROGRAF [Concomitant]
     Active Substance: TACROLIMUS
     Indication: Product used for unknown indication
     Route: 048
  26. JAKAFI [Concomitant]
     Active Substance: RUXOLITINIB
     Indication: Product used for unknown indication
     Route: 048
     Dates: start: 20220124

REACTIONS (19)
  - Chronic graft versus host disease [Unknown]
  - Marrow hyperplasia [Unknown]
  - Dysplasia [Unknown]
  - Intra-abdominal haematoma [Unknown]
  - Blood pressure increased [Unknown]
  - Heart rate increased [Unknown]
  - Infection susceptibility increased [Unknown]
  - Pulmonary mass [Unknown]
  - Lung disorder [Unknown]
  - Upper limb fracture [Unknown]
  - Skin hypopigmentation [Unknown]
  - Hypothyroidism [Unknown]
  - Loss of personal independence in daily activities [Unknown]
  - Hypogammaglobulinaemia [Unknown]
  - Immunosuppression [Unknown]
  - Off label use [Unknown]
  - Cough [Recovering/Resolving]
  - Thrombocytopenia [Unknown]
  - Cytomegalovirus viraemia [Unknown]

NARRATIVE: CASE EVENT DATE: 20220322
